FAERS Safety Report 13812929 (Version 4)
Quarter: 2017Q3

REPORT INFORMATION
  Report Type: Report from Study
  Country: US (occurrence: US)
  Receive Date: 20170731
  Receipt Date: 20170824
  Transmission Date: 20171127
  Serious: No
  Sender: FDA-Public Use
  Company Number: PHEH2017US023525

PATIENT
  Age: 68 Year
  Sex: Male

DRUGS (1)
  1. SIMBRINZA [Suspect]
     Active Substance: BRIMONIDINE TARTRATE\BRINZOLAMIDE
     Indication: NORMAL TENSION GLAUCOMA
     Dosage: UNK UNK, BID
     Route: 061
     Dates: start: 20161027, end: 20170725

REACTIONS (7)
  - Eye irritation [Unknown]
  - Eye injury [Unknown]
  - Ocular hyperaemia [Unknown]
  - Eyelid oedema [Unknown]
  - Eye pruritus [Unknown]
  - Eye swelling [Unknown]
  - Eyelid rash [Unknown]

NARRATIVE: CASE EVENT DATE: 20170725
